FAERS Safety Report 24342705 (Version 4)
Quarter: 2025Q2

REPORT INFORMATION
  Report Type: Report from Study
  Country: CR (occurrence: CR)
  Receive Date: 20240920
  Receipt Date: 20250520
  Transmission Date: 20250717
  Serious: Yes (Life-Threatening, Other)
  Sender: NOVARTIS
  Company Number: CR-002147023-NVSC2024CR186758

PATIENT
  Age: 55 Year
  Sex: Female

DRUGS (8)
  1. KISQALI [Suspect]
     Active Substance: RIBOCICLIB SUCCINATE
     Indication: Breast cancer metastatic
     Dosage: 3 DOSAGE FORM (600MG)
     Route: 048
     Dates: start: 202308
  2. KISQALI [Suspect]
     Active Substance: RIBOCICLIB SUCCINATE
     Dosage: 600 MG, QD
     Route: 048
     Dates: start: 202308, end: 20240913
  3. KISQALI [Suspect]
     Active Substance: RIBOCICLIB SUCCINATE
     Dosage: 400 MG, QD
     Route: 048
     Dates: start: 20230814
  4. KISQALI [Suspect]
     Active Substance: RIBOCICLIB SUCCINATE
     Dosage: 3 DOSAGE FORM, QD
     Route: 048
     Dates: start: 20240826
  5. KISQALI [Suspect]
     Active Substance: RIBOCICLIB SUCCINATE
     Dosage: 3 DOSAGE FORM, QD
     Route: 048
     Dates: start: 20240827
  6. KISQALI [Suspect]
     Active Substance: RIBOCICLIB SUCCINATE
     Route: 065
     Dates: start: 20240913
  7. KISQALI [Suspect]
     Active Substance: RIBOCICLIB SUCCINATE
     Route: 065
     Dates: start: 20240914
  8. FULVESTRANT [Suspect]
     Active Substance: FULVESTRANT
     Indication: Product used for unknown indication
     Route: 065

REACTIONS (14)
  - Gastritis [Not Recovered/Not Resolved]
  - Feeling abnormal [Unknown]
  - Breast cancer metastatic [Unknown]
  - Malignant neoplasm progression [Unknown]
  - Drug intolerance [Not Recovered/Not Resolved]
  - Vomiting [Not Recovered/Not Resolved]
  - Abdominal pain upper [Not Recovered/Not Resolved]
  - Abdominal discomfort [Unknown]
  - Parosmia [Unknown]
  - Pain in extremity [Unknown]
  - Nausea [Unknown]
  - Vitiligo [Not Recovered/Not Resolved]
  - Influenza [Not Recovered/Not Resolved]
  - Hypersensitivity [Unknown]

NARRATIVE: CASE EVENT DATE: 20240201
